FAERS Safety Report 14667688 (Version 1)
Quarter: 2018Q1

REPORT INFORMATION
  Report Type: Spontaneous
  Country: US (occurrence: US)
  Receive Date: 20180322
  Receipt Date: 20180322
  Transmission Date: 20180509
  Serious: No
  Sender: FDA-Public Use
  Company Number: US-PFIZER INC-2018118193

PATIENT
  Age: 34 Year
  Sex: Female

DRUGS (1)
  1. XELJANZ XR [Suspect]
     Active Substance: TOFACITINIB CITRATE
     Dosage: 11 MG, UNK

REACTIONS (10)
  - Upper respiratory tract infection [Unknown]
  - Night sweats [Unknown]
  - Photosensitivity reaction [Unknown]
  - Arthralgia [Unknown]
  - Myalgia [Unknown]
  - Sinusitis [Unknown]
  - Sleep disorder [Unknown]
  - Exercise tolerance decreased [Unknown]
  - Raynaud^s phenomenon [Unknown]
  - Increased tendency to bruise [Unknown]
